FAERS Safety Report 19427591 (Version 1)
Quarter: 2021Q2

REPORT INFORMATION
  Report Type: Spontaneous
  Country: US (occurrence: US)
  Receive Date: 20210616
  Receipt Date: 20210616
  Transmission Date: 20210717
  Serious: Yes (Other)
  Sender: FDA-Public Use
  Company Number: US-ELI_LILLY_AND_COMPANY-US202106003469

PATIENT
  Age: 79 Year
  Sex: Male

DRUGS (5)
  1. HUMALOG [Suspect]
     Active Substance: INSULIN LISPRO
     Indication: PRODUCT USED FOR UNKNOWN INDICATION
     Dosage: 28?30 U, DAILY AT SLIDING SCALE
     Route: 065
     Dates: start: 20150415
  2. HUMALOG [Suspect]
     Active Substance: INSULIN LISPRO
     Dosage: 28?30 U, DAILY AT SLIDING SCALE
     Route: 065
  3. LEVEMIR [Concomitant]
     Active Substance: INSULIN DETEMIR
     Indication: DIABETES MELLITUS
  4. HUMALOG [Suspect]
     Active Substance: INSULIN LISPRO
     Indication: PRODUCT USED FOR UNKNOWN INDICATION
     Dosage: 28?30 U, DAILY AT SLIDING SCALE
     Route: 065
     Dates: start: 20150415
  5. HUMALOG [Suspect]
     Active Substance: INSULIN LISPRO
     Dosage: 28?30 U, DAILY AT SLIDING SCALE
     Route: 065

REACTIONS (1)
  - Post procedural complication [Unknown]

NARRATIVE: CASE EVENT DATE: 202012
